FAERS Safety Report 24949776 (Version 1)
Quarter: 2025Q1

REPORT INFORMATION
  Report Type: Spontaneous
  Country: ES (occurrence: ES)
  Receive Date: 20250210
  Receipt Date: 20250210
  Transmission Date: 20250409
  Serious: Yes (Hospitalization)
  Sender: NOVARTIS
  Company Number: None

PATIENT
  Age: 30 Year
  Sex: Female
  Weight: 53 kg

DRUGS (3)
  1. EVEROLIMUS [Interacting]
     Active Substance: EVEROLIMUS
     Indication: Renal transplant
     Dosage: 1 MG, Q12H
     Route: 048
     Dates: start: 202302
  2. TACROLIMUS [Interacting]
     Active Substance: TACROLIMUS
     Indication: Renal transplant
     Dosage: 3 MG, QD
     Route: 048
     Dates: start: 202204
  3. PREDNISONE [Interacting]
     Active Substance: PREDNISONE
     Indication: Renal transplant
     Dosage: 5 MG, QD
     Route: 048
     Dates: start: 202204

REACTIONS (3)
  - Vulvovaginal candidiasis [Recovered/Resolved]
  - Rhinovirus infection [Recovered/Resolved]
  - Genitourinary tract infection [Recovered/Resolved]

NARRATIVE: CASE EVENT DATE: 20241119
